FAERS Safety Report 19182146 (Version 2)
Quarter: 2022Q1

REPORT INFORMATION
  Report Type: Spontaneous
  Country: SI (occurrence: SI)
  Receive Date: 20210426
  Receipt Date: 20220325
  Transmission Date: 20220423
  Serious: Yes (Other)
  Sender: FDA-Public Use
  Company Number: SI-002147023-NVSC2021SI082616

PATIENT
  Age: 66 Year
  Sex: Female

DRUGS (8)
  1. INVANZ [Suspect]
     Active Substance: ERTAPENEM SODIUM
     Indication: Urinary tract infection
     Dosage: UNK
     Route: 042
     Dates: start: 20210212, end: 20210222
  2. FOSFOMYCIN TROMETHAMINE [Suspect]
     Active Substance: FOSFOMYCIN TROMETHAMINE
     Indication: Urinary tract infection
     Dosage: 3 MG (FOR 5 DAYS)
     Route: 065
     Dates: start: 202102, end: 202102
  3. FOSFOMYCIN TROMETHAMINE [Suspect]
     Active Substance: FOSFOMYCIN TROMETHAMINE
     Dosage: UNK
     Route: 065
     Dates: start: 202006, end: 202103
  4. GENTAMICIN SULFATE [Suspect]
     Active Substance: GENTAMICIN SULFATE
     Indication: Urinary tract infection
     Dosage: UNK
     Route: 065
     Dates: start: 202006, end: 202103
  5. CIPROFLOXACIN HYDROCHLORIDE [Suspect]
     Active Substance: CIPROFLOXACIN HYDROCHLORIDE
     Indication: Urinary tract infection
     Dosage: UNK (500/12H FOR 7 DAYS)
     Route: 065
     Dates: start: 202006, end: 202103
  6. CEFIXIME [Suspect]
     Active Substance: CEFIXIME
     Indication: Urinary tract infection
     Dosage: UNK
     Route: 065
     Dates: start: 202006, end: 202103
  7. AMOXICILLIN\CLAVULANATE POTASSIUM [Suspect]
     Active Substance: AMOXICILLIN\CLAVULANATE POTASSIUM
     Indication: Urinary tract infection
     Dosage: UNK
     Route: 065
     Dates: start: 202006, end: 202103
  8. TWYNSTA [Concomitant]
     Active Substance: AMLODIPINE BESYLATE\TELMISARTAN
     Indication: Hypertension
     Dosage: UNK (40/5)
     Route: 065

REACTIONS (2)
  - Drug ineffective [Unknown]
  - Enterococcal infection [Unknown]
